FAERS Safety Report 6637920-3 (Version None)
Quarter: 2010Q1

REPORT INFORMATION
  Report Type: 
  Country: None (occurrence: None)
  Receive Date: 20100317
  Receipt Date: 20100305
  Transmission Date: 20100710
  Serious: Yes (Hospitalization, Other)
  Sender: FDA-Public Use
  Company Number: PHHY2010BR13547

PATIENT
  Age: 10 Year
  Sex: Male

DRUGS (1)
  1. FORASEQ [Suspect]
     Indication: ASTHMA
     Dosage: INHALATION OF 1 CAPSULE FUMARATE, ONCE A DAY

REACTIONS (5)
  - ATELECTASIS [None]
  - ATTENTION DEFICIT/HYPERACTIVITY DISORDER [None]
  - DYSLEXIA [None]
  - GASTRITIS [None]
  - PNEUMONIA [None]
